FAERS Safety Report 11552831 (Version 1)
Quarter: 2015Q3

REPORT INFORMATION
  Report Type: Spontaneous
  Country: HR (occurrence: HR)
  Receive Date: 20150925
  Receipt Date: 20150925
  Transmission Date: 20151125
  Serious: Yes (Hospitalization)
  Sender: FDA-Public Use
  Company Number: HR-HTU-2015HR011455

PATIENT
  Age: 29 Year
  Sex: Male
  Weight: 100 kg

DRUGS (5)
  1. DACARBAZINE CITRATE [Concomitant]
     Active Substance: DACARBAZINE CITRATE
     Indication: HODGKIN^S DISEASE
     Dosage: 86 MG, UNK
     Route: 042
     Dates: start: 20150309, end: 20150822
  2. ALOXI [Suspect]
     Active Substance: PALONOSETRON HYDROCHLORIDE
     Indication: PROPHYLAXIS OF NAUSEA AND VOMITING
     Dosage: 3 DOSES IN TOTAL
     Route: 042
     Dates: start: 20150309, end: 20150407
  3. BLEOMYCIN [Concomitant]
     Active Substance: BLEOMYCIN SULFATE
     Indication: HODGKIN^S DISEASE
     Dosage: 20 MG, UNK
     Route: 042
     Dates: start: 20150309, end: 20150822
  4. DOXORUBICIN [Concomitant]
     Active Substance: DOXORUBICIN
     Indication: HODGKIN^S DISEASE
     Dosage: 60 MG, UNK
     Route: 042
     Dates: start: 20150309, end: 20150822
  5. VINBLASTINE SULFATE. [Concomitant]
     Active Substance: VINBLASTINE SULFATE
     Indication: HODGKIN^S DISEASE
     Dosage: 14 MG, UNK
     Route: 042
     Dates: start: 20150309, end: 20150822

REACTIONS (7)
  - Loss of consciousness [Recovered/Resolved]
  - Encephalitis [Recovered/Resolved]
  - Nuclear magnetic resonance imaging brain abnormal [Recovered/Resolved]
  - Headache [Recovered/Resolved]
  - Amnesia [Recovered/Resolved]
  - Slow response to stimuli [Recovered/Resolved]
  - Memory impairment [Recovered/Resolved]

NARRATIVE: CASE EVENT DATE: 20150408
